FAERS Safety Report 4865834-8 (Version None)
Quarter: 2005Q4

REPORT INFORMATION
  Report Type: 
  Country: None (occurrence: None)
  Receive Date: 20051220
  Receipt Date: 20051208
  Transmission Date: 20060501
  Serious: Yes (Death, Hospitalization)
  Sender: FDA-Public Use
  Company Number: 2005139226

PATIENT
  Age: 80 Year
  Sex: Male

DRUGS (4)
  1. LYRICA [Suspect]
     Indication: NEURALGIA
     Dosage: 300 MG (150 MG, 2 IN1 D) ORAL
     Route: 048
     Dates: start: 20050401
  2. WARFARIN SODIUM [Concomitant]
  3. APOREX (DEXTROPROPOXYPHENE HYDROCHLORIDE, PARACETAMOL) [Concomitant]
  4. PARACET (PARACETAMOL) [Concomitant]

REACTIONS (1)
  - PNEUMONIA [None]
